FAERS Safety Report 21985716 (Version 3)
Quarter: 2023Q2

REPORT INFORMATION
  Report Type: Report from Study
  Country: JP (occurrence: JP)
  Receive Date: 20230213
  Receipt Date: 20230406
  Transmission Date: 20230721
  Serious: Yes (Life-Threatening, Hospitalization)
  Sender: FDA-Public Use
  Company Number: JP-JNJFOC-20230218274

PATIENT
  Age: 78 Year
  Sex: Female
  Weight: 49.6 kg

DRUGS (20)
  1. AMIVANTAMAB [Suspect]
     Active Substance: AMIVANTAMAB
     Indication: Non-small cell lung cancer metastatic
     Dosage: C1D1
     Route: 042
     Dates: start: 20220531, end: 20220531
  2. AMIVANTAMAB [Suspect]
     Active Substance: AMIVANTAMAB
     Dosage: C1D2
     Route: 042
     Dates: start: 20220601
  3. AMIVANTAMAB [Suspect]
     Active Substance: AMIVANTAMAB
     Dosage: C1D8~C2D1
     Route: 042
  4. AMIVANTAMAB [Suspect]
     Active Substance: AMIVANTAMAB
     Dosage: C3D1~C8D1
     Route: 042
     Dates: end: 20221025
  5. AMIVANTAMAB [Suspect]
     Active Substance: AMIVANTAMAB
     Dosage: WITHDRAWN ON C9D1
     Route: 042
     Dates: end: 20221115
  6. AMIVANTAMAB [Suspect]
     Active Substance: AMIVANTAMAB
     Dosage: C11D8
     Route: 042
     Dates: start: 20230207, end: 20230207
  7. PEMETREXED [Concomitant]
     Active Substance: PEMETREXED
     Indication: Non-small cell lung cancer metastatic
     Dosage: C1D1 (ALSO REPORTED AS 725 MG)
     Route: 042
     Dates: start: 20220531, end: 20220802
  8. PEMETREXED [Concomitant]
     Active Substance: PEMETREXED
     Dosage: WITHDRAWN ON C10D1
     Route: 042
     Dates: end: 20221206
  9. PEMETREXED [Concomitant]
     Active Substance: PEMETREXED
     Dosage: C11D1
     Route: 042
     Dates: start: 20230131
  10. CARBOPLATIN [Concomitant]
     Active Substance: CARBOPLATIN
     Indication: Non-small cell lung cancer metastatic
     Route: 042
     Dates: start: 20220531, end: 20220802
  11. ROSUVASTATIN CALCIUM [Concomitant]
     Active Substance: ROSUVASTATIN CALCIUM
     Indication: Dyslipidaemia
     Route: 048
     Dates: start: 20180101
  12. PIRENOXINE [Concomitant]
     Active Substance: PIRENOXINE
     Indication: Cataract
     Dosage: 1 OR 2 DROPS/DOSE
     Route: 047
     Dates: start: 20220404
  13. SENNOSIDES A AND B [Concomitant]
     Active Substance: SENNOSIDES A AND B
     Indication: Constipation
     Route: 048
     Dates: start: 20220625
  14. LOPERAMIDE HYDROCHLORIDE [Concomitant]
     Active Substance: LOPERAMIDE HYDROCHLORIDE
     Indication: Diarrhoea
     Dosage: ALSO REPORTED AS 12 MG
     Route: 048
     Dates: start: 20220627
  15. ZINC OXIDE [Concomitant]
     Active Substance: ZINC OXIDE
     Indication: Paronychia
     Dosage: DOSE 1 (UNIT NOT SPECIFIED); ALSO REPORTED AS TRANSDERMAL
     Route: 061
     Dates: start: 20220803
  16. CLOBETASOL [Concomitant]
     Active Substance: CLOBETASOL
     Indication: Cheilitis
     Dosage: DOSE 1 (UNIT NOT SPECIFIED)
     Route: 061
     Dates: start: 20220803
  17. FUROSEMIDE [Concomitant]
     Active Substance: FUROSEMIDE
     Indication: Oedema peripheral
     Route: 048
     Dates: start: 20221025
  18. ELIQUIS [Concomitant]
     Active Substance: APIXABAN
     Indication: Deep vein thrombosis
     Route: 048
     Dates: start: 20221213
  19. UREA [Concomitant]
     Active Substance: UREA
     Indication: Paronychia
     Dosage: DOSE 1 (UNIT NOT SPECIFIED); ALSO REPORTED AS TRANSDERMAL
     Route: 061
     Dates: start: 20221220
  20. LEVOFLOXACIN [Concomitant]
     Active Substance: LEVOFLOXACIN
     Indication: Eye discharge
     Route: 061
     Dates: start: 20220930

REACTIONS (1)
  - Anaphylactic reaction [Recovered/Resolved]

NARRATIVE: CASE EVENT DATE: 20230207
